FAERS Safety Report 5859617-X (Version None)
Quarter: 2008Q3

REPORT INFORMATION
  Report Type: 
  Country: None (occurrence: None)
  Receive Date: 20080826
  Receipt Date: 20080826
  Transmission Date: 20090109
  Serious: Yes (Life-Threatening)
  Sender: FDA-Public Use
  Company Number: None

PATIENT
  Sex: Female
  Weight: 70.3075 kg

DRUGS (3)
  1. CYMBALTA [Suspect]
     Indication: DEPRESSION
     Dosage: CYMBALTA 60 MG 1X/D PO
     Route: 048
     Dates: start: 20080518, end: 20080825
  2. CYMBALTA [Suspect]
     Indication: PAIN
     Dosage: CYMBALTA 60 MG 1X/D PO
     Route: 048
     Dates: start: 20080518, end: 20080825
  3. ULTRAM [Suspect]
     Indication: PAIN
     Dosage: ULTRAM 100MG BID PO
     Route: 048
     Dates: start: 20080316, end: 20080808

REACTIONS (12)
  - ABASIA [None]
  - ARTHROPOD BITE [None]
  - CONSTIPATION [None]
  - DISORIENTATION [None]
  - DYSKINESIA [None]
  - DYSURIA [None]
  - GAIT DISTURBANCE [None]
  - HYPOAESTHESIA [None]
  - MEMORY IMPAIRMENT [None]
  - NEUROLOGICAL SYMPTOM [None]
  - PARAESTHESIA [None]
  - WALKING AID USER [None]
